FAERS Safety Report 7705922-1 (Version None)
Quarter: 2011Q3

REPORT INFORMATION
  Report Type: 
  Country: None (occurrence: None)
  Receive Date: 20110824
  Receipt Date: 20110823
  Transmission Date: 20111222
  Serious: Yes (Hospitalization)
  Sender: FDA-Public Use
  Company Number: JP-PFIZER INC-2011194245

PATIENT
  Age: 68 Year
  Sex: Female

DRUGS (2)
  1. TETRAMIDE [Concomitant]
     Dosage: UNK
  2. ZOLOFT [Suspect]
     Dosage: 25 MG DAILY
     Route: 048

REACTIONS (1)
  - LIVER DISORDER [None]
